FAERS Safety Report 17949609 (Version 1)
Quarter: 2020Q2

REPORT INFORMATION
  Report Type: Spontaneous
  Country: US (occurrence: US)
  Receive Date: 20200626
  Receipt Date: 20200626
  Transmission Date: 20200714
  Serious: Yes (Other)
  Sender: FDA-Public Use
  Company Number: None

PATIENT
  Age: 60 Year
  Sex: Female
  Weight: 57.15 kg

DRUGS (4)
  1. ARIKAYCE [Suspect]
     Active Substance: AMIKACIN
     Indication: LUNG DISORDER
     Dosage: ?          QUANTITY:1 INHALATION(S);?
     Route: 055
  2. ETHAMBUTROL [Concomitant]
  3. ZITHROMAX [Concomitant]
     Active Substance: AZITHROMYCIN DIHYDRATE
  4. ALBUTEROL. [Concomitant]
     Active Substance: ALBUTEROL

REACTIONS (5)
  - Oropharyngeal pain [None]
  - Laryngitis [None]
  - Fungal infection [None]
  - Dysphonia [None]
  - Aphonia [None]

NARRATIVE: CASE EVENT DATE: 20200423
